FAERS Safety Report 8214214-6 (Version None)
Quarter: 2012Q1

REPORT INFORMATION
  Report Type: 
  Country: None (occurrence: None)
  Receive Date: 20120316
  Receipt Date: 20120309
  Transmission Date: 20120608
  Serious: Yes (Other)
  Sender: FDA-Public Use
  Company Number: US-PFIZER INC-2012063640

PATIENT
  Sex: Female
  Weight: 72.109 kg

DRUGS (11)
  1. EFFEXOR XR [Suspect]
     Indication: DEPRESSION
     Dosage: 37.5 MG, DAILY
     Dates: start: 19991001
  2. EXCEDRIN (ASPIRIN/CAFFEINE/PARACETAMOL) [Concomitant]
     Indication: PAIN
     Dosage: UNK
  3. TRAZODONE HCL [Suspect]
     Dosage: UNK
  4. EFFEXOR XR [Suspect]
     Dosage: 150 MG, DAILY
     Dates: start: 20060101
  5. VENLAFAXINE HCL [Suspect]
     Indication: DEPRESSION
     Dosage: UNK
  6. NEXIUM [Concomitant]
     Indication: GASTROOESOPHAGEAL REFLUX DISEASE
     Dosage: 40 MG, DAILY
     Route: 048
  7. NEXIUM [Concomitant]
     Indication: HIATUS HERNIA
  8. BENICAR HCT [Concomitant]
     Indication: BLOOD PRESSURE ABNORMAL
     Dosage: 12.5/20 MG DAILY
  9. EFFEXOR XR [Suspect]
     Dosage: 450 MG, DAILY
  10. JANUVIA [Concomitant]
     Indication: DIABETES MELLITUS
     Dosage: UNK, DAILY
     Dates: end: 20120101
  11. PAXIL [Suspect]
     Indication: DEPRESSION
     Dosage: UNK

REACTIONS (25)
  - TOXICITY TO VARIOUS AGENTS [None]
  - HEADACHE [None]
  - DRUG DEPENDENCE [None]
  - LIVER FUNCTION TEST ABNORMAL [None]
  - WEIGHT DECREASED [None]
  - BLOOD PRESSURE INCREASED [None]
  - ANXIETY [None]
  - CONFUSIONAL STATE [None]
  - AGGRESSION [None]
  - FEELING ABNORMAL [None]
  - MEMORY IMPAIRMENT [None]
  - LOGORRHOEA [None]
  - DEPRESSED MOOD [None]
  - IRRITABILITY [None]
  - RESTLESSNESS [None]
  - INSOMNIA [None]
  - DYSSTASIA [None]
  - MOOD SWINGS [None]
  - TINEA PEDIS [None]
  - LACRIMATION INCREASED [None]
  - BURNOUT SYNDROME [None]
  - ANGER [None]
  - IMPATIENCE [None]
  - SUICIDAL IDEATION [None]
  - APATHY [None]
